FAERS Safety Report 8321707-X (Version None)
Quarter: 2012Q2

REPORT INFORMATION
  Report Type: 
  Country: None (occurrence: None)
  Receive Date: 20120430
  Receipt Date: 20120419
  Transmission Date: 20120825
  Serious: No
  Sender: FDA-Public Use
  Company Number: BR-ASTRAZENECA-2012SE21357

PATIENT
  Age: 61 Year
  Sex: Male
  Weight: 79 kg

DRUGS (4)
  1. METOPROLOL SUCCINATE [Suspect]
     Indication: ARRHYTHMIA
     Route: 048
     Dates: start: 20120101
  2. ASPIRIN [Concomitant]
     Route: 048
  3. UNSPECIFIED ANALGESIC [Concomitant]
     Route: 048
  4. CRESTOR [Suspect]
     Indication: BLOOD CHOLESTEROL INCREASED
     Route: 048
     Dates: start: 20120101

REACTIONS (3)
  - HYPERTENSION [None]
  - PSYCHOMOTOR HYPERACTIVITY [None]
  - ANXIETY [None]
